FAERS Safety Report 11112865 (Version 1)
Quarter: 2015Q2

REPORT INFORMATION
  Report Type: Spontaneous
  Country: DE (occurrence: None)
  Receive Date: 20150512
  Receipt Date: 20150512
  Transmission Date: 20150821
  Serious: Yes (Other)
  Sender: FDA-Public Use
  Company Number: DE-DEXPHARM-20150294

PATIENT
  Age: 32 Year
  Sex: Female

DRUGS (1)
  1. PERIOCHIP [Suspect]
     Active Substance: CHLORHEXIDINE GLUCONATE
     Indication: PERIODONTITIS
     Dosage: 2.5 MG MILLIGRAM(S) SEP. DOSAGE/INTERVL: 1 IN 1 TOTAL?
     Route: 004
     Dates: start: 20150423

REACTIONS (6)
  - Circulatory collapse [None]
  - Drug hypersensitivity [None]
  - Dizziness [None]
  - Ear pain [None]
  - Paraesthesia [None]
  - Pruritus [None]

NARRATIVE: CASE EVENT DATE: 20150423
